FAERS Safety Report 4819474-7 (Version None)
Quarter: 2005Q4

REPORT INFORMATION
  Report Type: 
  Country: None (occurrence: None)
  Receive Date: 20051031
  Receipt Date: 20050712
  Transmission Date: 20060501
  Serious: No
  Sender: FDA-Public Use
  Company Number: 2005PV000385

PATIENT
  Age: 79 Year
  Sex: Female
  Weight: 81.6475 kg

DRUGS (9)
  1. SYMLIN [Suspect]
     Indication: DIABETES MELLITUS NON-INSULIN-DEPENDENT
     Dosage: 60 MCG; SC
     Route: 058
     Dates: start: 20050628
  2. HUMALOG [Concomitant]
  3. LANTUS [Concomitant]
  4. AVAPRO [Concomitant]
  5. SYNTHROID [Concomitant]
  6. ZETIA [Concomitant]
  7. LORAZEPAM [Concomitant]
  8. SINGULAIR [Concomitant]
  9. VALTREX [Concomitant]

REACTIONS (4)
  - CRYING [None]
  - DEPRESSION [None]
  - HERPES VIRUS INFECTION [None]
  - SOCIAL AVOIDANT BEHAVIOUR [None]
